FAERS Safety Report 6954715 (Version 1)
Quarter: 2020Q3

REPORT INFORMATION
  Report Type: Report from Study
  Country: KR (occurrence: KR)
  Receive Date: 20090327
  Receipt Date: 20090327
  Transmission Date: 20201105
  Serious: Yes (Hospitalization)
  Sender: FDA-Public Use
  Company Number: KR-WYE-H08698009

PATIENT
  Age: 54 Year
  Sex: Female
  Weight: 52 kg

DRUGS (9)
  1. PACLITAXEL. [Suspect]
     Active Substance: PACLITAXEL
     Indication: BREAST CANCER
     Dosage: 107.8MG/M^2 ON DAYS 1, 8, AND 15 FOR 28 DAYS
     Route: 042
     Dates: start: 20081107, end: 20090312
  2. PACLITAXEL. [Suspect]
     Active Substance: PACLITAXEL
     Route: 048
     Dates: start: 20090226, end: 20090320
  3. BENZYDAMINE [Concomitant]
     Active Substance: BENZYDAMINE
     Indication: PROPHYLAXIS
     Dosage: UNKNOWN
     Dates: start: 20081109
  4. LOPERAMIDE [Concomitant]
     Active Substance: LOPERAMIDE
     Indication: DIARRHOEA
     Dosage: UNKNOWN
     Dates: start: 20090226, end: 20090321
  5. POLYVIDONE [Concomitant]
     Indication: PROPHYLAXIS
     Dosage: UNKNOWN
     Dates: start: 20081109
  6. UNSPECIFIED INGREDIENT [Suspect]
     Active Substance: UNSPECIFIED INGREDIENT
     Route: 048
     Dates: start: 20090226, end: 20090320
  7. HYOSCYAMINE HYDROBROMIDE [Concomitant]
     Active Substance: HYOSCYAMINE HYDROBROMIDE
     Indication: DIARRHOEA
     Dosage: UNKNOWN
     Dates: start: 20090112, end: 20090321
  8. UNSPECIFIED INGREDIENT [Suspect]
     Active Substance: UNSPECIFIED INGREDIENT
     Indication: BREAST CANCER
     Route: 048
     Dates: start: 20081107, end: 20081204
  9. UNSPECIFIED INGREDIENT [Suspect]
     Active Substance: UNSPECIFIED INGREDIENT
     Route: 048
     Dates: start: 20090324

REACTIONS (2)
  - Cystitis [Recovered/Resolved]
  - Diarrhoea [Recovered/Resolved]

NARRATIVE: CASE EVENT DATE: 20090320
